FAERS Safety Report 9467708 (Version 2)
Quarter: 2013Q4

REPORT INFORMATION
  Report Type: Spontaneous
  Country: CA (occurrence: CA)
  Receive Date: 20130821
  Receipt Date: 20131004
  Transmission Date: 20140711
  Serious: Yes (Other)
  Sender: FDA-Public Use
  Company Number: CA-SANOFI-AVENTIS-2013SA081672

PATIENT
  Age: 63 Year
  Sex: Female
  Weight: 54.43 kg

DRUGS (8)
  1. LANTUS [Suspect]
     Indication: TYPE 2 DIABETES MELLITUS
     Dosage: FORM: SOLUTION SUBCUTANEOUS?QAM DOSE:15 UNIT(S)
     Route: 058
     Dates: start: 201212
  2. LANTUS [Suspect]
     Indication: TYPE 2 DIABETES MELLITUS
     Dosage: QPM DOSE:12 UNIT(S)
     Route: 058
     Dates: start: 201212
  3. ASA [Concomitant]
     Route: 048
  4. ATORVASTATIN CALCIUM [Concomitant]
     Route: 048
  5. HYDRALAZINE [Concomitant]
     Route: 048
     Dates: start: 201212
  6. LOSARTAN [Concomitant]
     Route: 048
     Dates: start: 201212
  7. METOPROLOL [Concomitant]
     Route: 048
     Dates: start: 201212
  8. PANTOPRAZOLE [Concomitant]
     Route: 048

REACTIONS (6)
  - Abdominal pain lower [Unknown]
  - Blood urine present [Unknown]
  - Skin burning sensation [Unknown]
  - Abdominal pain [Unknown]
  - Pyrexia [Unknown]
  - Skin sensitisation [Unknown]
